FAERS Safety Report 8914254 (Version 1)
Quarter: 2012Q4

REPORT INFORMATION
  Report Type: 
  Country: US (occurrence: US)
  Receive Date: 20121119
  Receipt Date: 20121119
  Transmission Date: 20130627
  Serious: Yes (Life-Threatening, Hospitalization)
  Sender: FDA-Public Use
  Company Number: US-B.I. PHARMACEUTICALS,INC./RIDGEFIELD-2012-BI-00158BP

PATIENT
  Sex: Female

DRUGS (12)
  1. SPIRIVA [Suspect]
     Indication: CHRONIC OBSTRUCTIVE PULMONARY DISEASE
     Dosage: 18 mcg
     Route: 055
     Dates: start: 2007
  2. MORPHINE [Concomitant]
     Indication: PAIN IN EXTREMITY
     Route: 048
  3. MORPHINE [Concomitant]
     Indication: BACK PAIN
  4. MORPHINE [Concomitant]
     Indication: NECK PAIN
  5. HYDROCHLOROTHIAZIDE [Concomitant]
     Indication: FLUID RETENTION
     Route: 048
  6. SIMVASTATIN [Concomitant]
     Indication: BLOOD CHOLESTEROL INCREASED
     Dosage: 80 mg
     Route: 048
  7. PHENERGAN [Concomitant]
     Indication: NAUSEA
  8. LOSARTAN [Concomitant]
     Indication: HYPERTENSION
     Dosage: 25 mg
     Route: 048
  9. SOMA [Concomitant]
     Indication: MUSCLE SPASMS
     Dosage: 1050 mg
     Route: 048
  10. PERCOCET [Concomitant]
     Indication: NECK PAIN
     Route: 048
  11. PERCOCET [Concomitant]
     Indication: MUSCULOSKELETAL PAIN
  12. PAXIL [Concomitant]
     Indication: DEPRESSION

REACTIONS (4)
  - Respiratory failure [Recovered/Resolved]
  - Visual acuity reduced [Not Recovered/Not Resolved]
  - Sleep apnoea syndrome [Not Recovered/Not Resolved]
  - Cardiac disorder [Recovered/Resolved]
